FAERS Safety Report 15251037 (Version 1)
Quarter: 2018Q3

REPORT INFORMATION
  Report Type: Spontaneous
  Country: BR (occurrence: BR)
  Receive Date: 20180807
  Receipt Date: 20180807
  Transmission Date: 20181010
  Serious: Yes (Other)
  Sender: FDA-Public Use
  Company Number: PHHY2018BR065893

PATIENT
  Sex: Female
  Weight: 70 kg

DRUGS (2)
  1. EXELON PATCH [Suspect]
     Active Substance: RIVASTIGMINE
     Indication: MEMORY IMPAIRMENT
     Dosage: 9.5 MG, QD PATCH 5 (CM2) (ONCE EVERY 24 HOURS)
     Route: 062
     Dates: end: 20180730
  2. EXELON PATCH [Suspect]
     Active Substance: RIVASTIGMINE
     Dosage: 18 MG, QD PATCH 10 (CM2) (ONCE EVERY 24 HOURS)
     Route: 062
     Dates: end: 20180730

REACTIONS (6)
  - Accidental overdose [Unknown]
  - Abnormal behaviour [Recovering/Resolving]
  - Drug dispensing error [Unknown]
  - Angina pectoris [Recovering/Resolving]
  - Hallucination [Recovering/Resolving]
  - Tachycardia [Recovering/Resolving]
